FAERS Safety Report 10160591 (Version 2)
Quarter: 2014Q2

REPORT INFORMATION
  Report Type: Spontaneous
  Country: MG (occurrence: MG)
  Receive Date: 20140508
  Receipt Date: 20140523
  Transmission Date: 20141212
  Serious: Yes (Other)
  Sender: FDA-Public Use
  Company Number: MG-WATSON-2014-09089

PATIENT
  Age: 55 Year
  Sex: Male

DRUGS (6)
  1. METRONIDAZOLE (UNKNOWN) [Suspect]
     Indication: HELICOBACTER INFECTION
     Dosage: UNKNOWN
     Route: 065
  2. CLARITHROMYCIN (UNKNOWN) [Suspect]
     Indication: HELICOBACTER INFECTION
     Dosage: 1 G, DAILY
     Route: 065
  3. AMOXICILLIN (UNKNOWN) [Suspect]
     Indication: HELICOBACTER INFECTION
     Dosage: 2 G, DAILY
     Route: 065
  4. AMOXICILLIN (UNKNOWN) [Suspect]
     Dosage: UNKNOWN
     Route: 065
  5. OMEPRAZOLE (UNKNOWN) [Suspect]
     Indication: HELICOBACTER INFECTION
     Dosage: UNKNOWN
     Route: 065
  6. ESOMEPRAZOLE (UNKNOWN) [Suspect]
     Indication: HELICOBACTER INFECTION
     Dosage: 40 MG, DAILY
     Route: 065

REACTIONS (4)
  - Helicobacter infection [Recovered/Resolved]
  - Pathogen resistance [Recovered/Resolved]
  - Treatment failure [Recovered/Resolved]
  - Drug ineffective [Recovered/Resolved]
